FAERS Safety Report 26001921 (Version 1)
Quarter: 2025Q4

REPORT INFORMATION
  Report Type: Spontaneous
  Country: US (occurrence: US)
  Receive Date: 20251105
  Receipt Date: 20251105
  Transmission Date: 20260118
  Serious: No
  Sender: MISSION PHARMACAL COMPANY
  Company Number: US-Mission Pharmacal Company-2187963

PATIENT
  Age: 64 Year
  Sex: Male

DRUGS (20)
  1. THIOLA EC [Suspect]
     Active Substance: TIOPRONIN
     Indication: Nephrolithiasis
     Dates: start: 20200101
  2. POTASSIUM CITRATE [Concomitant]
     Active Substance: POTASSIUM CITRATE
  3. BUDESONIDE [Concomitant]
     Active Substance: BUDESONIDE
  4. ipratropium ns [Concomitant]
  5. MECLIZINE [Concomitant]
     Active Substance: MECLIZINE HYDROCHLORIDE
  6. FEXOFENADINE [Concomitant]
     Active Substance: FEXOFENADINE HYDROCHLORIDE
  7. PANTOPRAZOLE [Concomitant]
     Active Substance: PANTOPRAZOLE
  8. BENADRYL [Concomitant]
     Active Substance: DIPHENHYDRAMINE HYDROCHLORIDE
  9. PILOCARPINE [Concomitant]
     Active Substance: PILOCARPINE
  10. ROSUVASTATIN [Concomitant]
     Active Substance: ROSUVASTATIN
  11. DOXAZOSIN [Concomitant]
     Active Substance: DOXAZOSIN MESYLATE
  12. AZELASTINE. [Concomitant]
     Active Substance: AZELASTINE HYDROCHLORIDE
  13. DESOXIMETASONE [Concomitant]
     Active Substance: DESOXIMETASONE
  14. TRAZODONE [Concomitant]
     Active Substance: TRAZODONE HYDROCHLORIDE
  15. ESZOPICLONE [Concomitant]
     Active Substance: ESZOPICLONE
  16. MONTELUKAST [Concomitant]
     Active Substance: MONTELUKAST
  17. MELATONIN [Concomitant]
     Active Substance: MELATONIN
  18. MAGNESIUM [Concomitant]
     Active Substance: MAGNESIUM
  19. LATANOPROST [Concomitant]
     Active Substance: LATANOPROST
  20. FLUTICASONE [Concomitant]
     Active Substance: FLUTICASONE

REACTIONS (5)
  - Pharyngitis [Unknown]
  - Sleep deficit [Unknown]
  - Dizziness [Unknown]
  - Blood pressure fluctuation [Unknown]
  - Productive cough [Unknown]
